FAERS Safety Report 6410802-8 (Version None)
Quarter: 2009Q4

REPORT INFORMATION
  Report Type: 
  Country: None (occurrence: None)
  Receive Date: 20091022
  Receipt Date: 20091016
  Transmission Date: 20100525
  Serious: Yes (Other)
  Sender: FDA-Public Use
  Company Number: CHPA2009DE19753

PATIENT
  Sex: Female
  Weight: 66 kg

DRUGS (3)
  1. SCOPODERM TTS (NCH) [Suspect]
     Indication: PROPHYLAXIS
     Dosage: UNK
     Route: 062
     Dates: start: 20090903, end: 20090913
  2. SCOPODERM TTS (NCH) [Suspect]
     Dosage: UNK
     Route: 062
     Dates: start: 20090801, end: 20090801
  3. THYROXIN [Concomitant]
     Dosage: 100 1X1, QD

REACTIONS (10)
  - ASTHENIA [None]
  - BALANCE DISORDER [None]
  - BLOOD PRESSURE INCREASED [None]
  - CONFUSIONAL STATE [None]
  - DIZZINESS [None]
  - HEADACHE [None]
  - MYDRIASIS [None]
  - NAUSEA [None]
  - SPEECH DISORDER [None]
  - VOMITING [None]
